FAERS Safety Report 12058611 (Version 1)
Quarter: 2016Q1

REPORT INFORMATION
  Report Type: Spontaneous
  Country: US (occurrence: None)
  Receive Date: 20160208
  Receipt Date: 20160208
  Transmission Date: 20160526
  Serious: No
  Sender: FDA-Public Use
  Company Number: None

PATIENT
  Age: 70 Year
  Sex: Female

DRUGS (19)
  1. SIMVASTATIN. [Concomitant]
     Active Substance: SIMVASTATIN
  2. LISINOPIRL/HCTZ [Concomitant]
  3. TRAVATAN Z [Concomitant]
     Active Substance: TRAVOPROST
  4. IBUPROFEN. [Concomitant]
     Active Substance: IBUPROFEN
  5. RANITIDINE [Concomitant]
     Active Substance: RANITIDINE\RANITIDINE HYDROCHLORIDE
  6. BISACODYL. [Concomitant]
     Active Substance: BISACODYL
  7. PREDNISONE. [Concomitant]
     Active Substance: PREDNISONE
  8. AMLODIPINE [Concomitant]
     Active Substance: AMLODIPINE BESYLATE
  9. SIMBRINZA [Concomitant]
     Active Substance: BRIMONIDINE TARTRATE\BRINZOLAMIDE
  10. ACTONEL [Concomitant]
     Active Substance: RISEDRONATE SODIUM
  11. AMOXICILLIN/CLAV ACID 875 MG [Suspect]
     Active Substance: AMOXICILLIN\CLAVULANIC ACID
     Dosage: 1 TABLET Q12H X 10D PO
     Route: 048
     Dates: start: 20160204
  12. TARVECA [Concomitant]
  13. BYSTOLIC [Concomitant]
     Active Substance: NEBIVOLOL HYDROCHLORIDE
  14. PROCHLORPERIDINE [Concomitant]
  15. ALPRAZOLAM. [Concomitant]
     Active Substance: ALPRAZOLAM
  16. METRONIDAZOLE. [Concomitant]
     Active Substance: METRONIDAZOLE
  17. HYDROCLOLOROTHIAZIDE [Concomitant]
  18. CHLORHEXIDINE [Concomitant]
     Active Substance: CHLORHEXIDINE
  19. FL PHOSPHO SOL SODA -REG [Concomitant]

REACTIONS (1)
  - Hypersensitivity [None]

NARRATIVE: CASE EVENT DATE: 20160205
